FAERS Safety Report 7969739 (Version 4)
Quarter: 2014Q3

REPORT INFORMATION
  Report Type: Report from Study
  Country: US (occurrence: US)
  Receive Date: 20110601
  Receipt Date: 20140702
  Transmission Date: 20150326
  Serious: Yes (Death, Hospitalization, Other)
  Sender: FDA-Public Use
  Company Number: US-BRISTOL-MYERS SQUIBB COMPANY-15781941

PATIENT
  Age: 70 Year
  Sex: Male

DRUGS (15)
  1. PEPCID [Concomitant]
     Active Substance: FAMOTIDINE
     Dates: start: 2011
  2. TOPROL XL [Concomitant]
     Active Substance: METOPROLOL SUCCINATE
     Dates: start: 2010
  3. NORCO [Concomitant]
     Active Substance: ACETAMINOPHEN\HYDROCODONE BITARTRATE
     Dosage: 1DF-5/235(UNITS NOT SP)
  4. IPILIMUMAB [Suspect]
     Active Substance: IPILIMUMAB
     Indication: MALIGNANT MELANOMA
     Route: 042
     Dates: start: 20110316, end: 20110517
  5. LOMOTIL [Concomitant]
     Active Substance: ATROPINE SULFATE\DIPHENOXYLATE HYDROCHLORIDE
     Dates: start: 20110517
  6. DIPHENOXYLATE HCL + ATROPINE SULFATE [Concomitant]
     Dosage: 1-2TABS
  7. NYSTATIN. [Concomitant]
     Active Substance: NYSTATIN
  8. ZOCOR [Concomitant]
     Active Substance: SIMVASTATIN
  9. TOPROL XL [Concomitant]
     Active Substance: METOPROLOL SUCCINATE
  10. COMPAZINE [Concomitant]
     Active Substance: PROCHLORPERAZINE MALEATE
  11. ASA [Concomitant]
     Active Substance: ASPIRIN
  12. DEXA [Concomitant]
  13. KEPPRA [Concomitant]
     Active Substance: LEVETIRACETAM
  14. MULTIVITAMINS [Concomitant]
     Active Substance: VITAMINS
  15. PEPCID [Concomitant]
     Active Substance: FAMOTIDINE

REACTIONS (4)
  - Dehydration [Recovered/Resolved]
  - Diarrhoea [Recovered/Resolved]
  - Malignant neoplasm progression [Fatal]
  - Enterocolitis haemorrhagic [Unknown]

NARRATIVE: CASE EVENT DATE: 20110520
